FAERS Safety Report 16617905 (Version 1)
Quarter: 2019Q3

REPORT INFORMATION
  Report Type: Spontaneous
  Country: US (occurrence: US)
  Receive Date: 20190610
  Receipt Date: 20190610
  Transmission Date: 20191004
  Serious: Yes (Other)
  Sender: FDA-Public Use
  Company Number: None

PATIENT
  Sex: Female
  Weight: 94.35 kg

DRUGS (11)
  1. OMEPRAZOLS [Concomitant]
  2. EZETIMIBE. [Concomitant]
     Active Substance: EZETIMIBE
  3. VITAMIN D3 [Concomitant]
     Active Substance: CHOLECALCIFEROL
  4. COMBIGAN [Concomitant]
     Active Substance: BRIMONIDINE TARTRATE\TIMOLOL MALEATE
  5. LOSARTAN 50MG [Suspect]
     Active Substance: LOSARTAN
  6. VERAPAMIL [Concomitant]
     Active Substance: VERAPAMIL HYDROCHLORIDE
  7. TEMISARTAN [Concomitant]
  8. VALSARTAN 40MG [Suspect]
     Active Substance: VALSARTAN
  9. HYDRALAZINE 10MG [Suspect]
     Active Substance: HYDRALAZINE HYDROCHLORIDE
  10. OXBUTYNIN [Concomitant]
  11. HYDROCHTBIAZIDE [Concomitant]

REACTIONS (6)
  - Skin discolouration [None]
  - Pruritus [None]
  - Alopecia [None]
  - Hypoaesthesia [None]
  - Recalled product administered [None]
  - Insomnia [None]
